FAERS Safety Report 25085601 (Version 2)
Quarter: 2025Q2

REPORT INFORMATION
  Report Type: Spontaneous
  Country: CN (occurrence: CN)
  Receive Date: 20250317
  Receipt Date: 20250608
  Transmission Date: 20250716
  Serious: Yes (Hospitalization)
  Sender: COHERUS
  Company Number: CN-SHANGHAI JUNSHI BIOSCIENCES CO., LTD.-CN2025013323

PATIENT

DRUGS (3)
  1. TORIPALIMAB [Suspect]
     Active Substance: TORIPALIMAB
     Indication: Lung carcinoma cell type unspecified recurrent
     Route: 041
     Dates: start: 20241223, end: 20250114
  2. DOCETAXEL [Concomitant]
     Active Substance: DOCETAXEL
     Indication: Lung carcinoma cell type unspecified recurrent
     Route: 041
     Dates: start: 20241223, end: 20250114
  3. NEDAPLATIN [Concomitant]
     Active Substance: NEDAPLATIN
     Indication: Lung carcinoma cell type unspecified recurrent
     Route: 041
     Dates: start: 20241223, end: 20250114

REACTIONS (2)
  - Dermatitis exfoliative [Recovering/Resolving]
  - Drug eruption [Recovering/Resolving]

NARRATIVE: CASE EVENT DATE: 20250115
